FAERS Safety Report 23129259 (Version 1)
Quarter: 2023Q4

REPORT INFORMATION
  Report Type: Spontaneous
  Country: US (occurrence: US)
  Receive Date: 20231031
  Receipt Date: 20231031
  Transmission Date: 20240110
  Serious: No
  Sender: FDA-Public Use
  Company Number: US-OPELLA-2023OHG010043

PATIENT
  Sex: Male

DRUGS (2)
  1. SELSUN BLUE ITCHY DRY SCALP [Suspect]
     Active Substance: PYRITHIONE ZINC
     Indication: Dry skin
  2. SELSUN BLUE ITCHY DRY SCALP [Suspect]
     Active Substance: PYRITHIONE ZINC
     Indication: Acne

REACTIONS (2)
  - Product prescribing issue [Unknown]
  - No adverse event [Unknown]
